FAERS Safety Report 5526161-9 (Version None)
Quarter: 2007Q4

REPORT INFORMATION
  Report Type: 
  Country: None (occurrence: None)
  Receive Date: 20071120
  Receipt Date: 20071108
  Transmission Date: 20080405
  Serious: Yes (Other)
  Sender: FDA-Public Use
  Company Number: 17800

PATIENT
  Age: 48 Year
  Sex: Female

DRUGS (4)
  1. METHOTREXATE [Suspect]
     Indication: CONNECTIVE TISSUE DISORDER
     Dosage: 10 MG WEEKLY
  2. METHOTREXATE [Suspect]
     Indication: CONNECTIVE TISSUE DISORDER
     Dosage: 25 MG WEEKLY
  3. HYDROXYCHLOROQUINE SULFATE [Concomitant]
  4. PREDNISOLONE [Concomitant]

REACTIONS (9)
  - CONDITION AGGRAVATED [None]
  - DIFFUSE LARGE B-CELL LYMPHOMA [None]
  - EPSTEIN-BARR VIRUS INFECTION [None]
  - FATIGUE [None]
  - LYMPHOPROLIFERATIVE DISORDER [None]
  - NIGHT SWEATS [None]
  - POLYARTHRITIS [None]
  - RAYNAUD'S PHENOMENON [None]
  - WEIGHT DECREASED [None]
